FAERS Safety Report 10571745 (Version 1)
Quarter: 2014Q4

REPORT INFORMATION
  Report Type: Spontaneous
  Country: US (occurrence: US)
  Receive Date: 20141107
  Receipt Date: 20141107
  Transmission Date: 20150529
  Serious: Yes (Hospitalization, Other)
  Sender: FDA-Public Use
  Company Number: US-FRI-1000072136

PATIENT
  Sex: Male

DRUGS (6)
  1. CELEXA [Suspect]
     Active Substance: CITALOPRAM HYDROBROMIDE
     Indication: BIPOLAR II DISORDER
     Route: 048
     Dates: start: 2014, end: 2014
  2. LITHIUM [Suspect]
     Active Substance: LITHIUM CARBONATE
     Dates: start: 201406, end: 201410
  3. RISPERDAL [Suspect]
     Active Substance: RISPERIDONE
     Indication: BIPOLAR II DISORDER
     Dates: start: 2014, end: 2014
  4. RISPERDAL [Suspect]
     Active Substance: RISPERIDONE
     Dates: start: 201406, end: 201410
  5. CELEXA [Suspect]
     Active Substance: CITALOPRAM HYDROBROMIDE
     Route: 048
     Dates: start: 201406, end: 201410
  6. LITHIUM [Suspect]
     Active Substance: LITHIUM CARBONATE
     Indication: BIPOLAR II DISORDER
     Dates: start: 2014, end: 2014

REACTIONS (15)
  - Unevaluable event [Recovered/Resolved]
  - Feeling abnormal [Recovered/Resolved]
  - Mental impairment [Recovered/Resolved]
  - Antisocial behaviour [Recovered/Resolved]
  - Judgement impaired [Recovered/Resolved]
  - Pain [Recovered/Resolved]
  - Suicidal ideation [Recovered/Resolved]
  - Loss of employment [Unknown]
  - Alcohol abuse [Recovered/Resolved]
  - Eating disorder [Unknown]
  - Off label use [Recovered/Resolved]
  - Mental impairment [Recovered/Resolved]
  - Thought blocking [Recovered/Resolved]
  - Unevaluable event [Recovered/Resolved]
  - Poisoning deliberate [Recovered/Resolved]

NARRATIVE: CASE EVENT DATE: 2014
